FAERS Safety Report 14384643 (Version 1)
Quarter: 2018Q1

REPORT INFORMATION
  Report Type: Spontaneous
  Country: FR (occurrence: FR)
  Receive Date: 20180115
  Receipt Date: 20180115
  Transmission Date: 20180509
  Serious: Yes (Life-Threatening)
  Sender: FDA-Public Use
  Company Number: FR-MYLANLABS-2018M1001977

PATIENT
  Age: 71 Year
  Sex: Female

DRUGS (2)
  1. BISOCE 2,5 MG, COMPRIM? PELLICUL? S?CABLE [Suspect]
     Active Substance: BISOPROLOL FUMARATE
     Indication: ACUTE CORONARY SYNDROME
     Dosage: 2.5 MG, AM
     Route: 048
     Dates: start: 20171123
  2. BRILIQUE [Suspect]
     Active Substance: TICAGRELOR
     Indication: ACUTE CORONARY SYNDROME
     Dosage: 180 MG, UNK
     Route: 048
     Dates: start: 20171123, end: 20171128

REACTIONS (1)
  - Sinoatrial block [Recovered/Resolved]

NARRATIVE: CASE EVENT DATE: 20171129
